FAERS Safety Report 9106015 (Version 1)
Quarter: 2013Q1

REPORT INFORMATION
  Report Type: Spontaneous
  Country: US (occurrence: US)
  Receive Date: 20130220
  Receipt Date: 20130220
  Transmission Date: 20140127
  Serious: Yes (Hospitalization, Other)
  Sender: FDA-Public Use
  Company Number: US-PFIZER INC-2013063384

PATIENT
  Age: 58 Year
  Sex: Female
  Weight: 131.52 kg

DRUGS (2)
  1. LYRICA [Suspect]
     Indication: DIABETIC NEUROPATHY
     Dosage: 100 MG, 3X/DAY
     Route: 048
     Dates: start: 2009
  2. METFORMIN [Concomitant]
     Indication: DIABETES MELLITUS
     Dosage: UNK

REACTIONS (6)
  - Gastrointestinal haemorrhage [Unknown]
  - Haematemesis [Unknown]
  - Gastric varices [Unknown]
  - Intestinal varices [Unknown]
  - Varices oesophageal [Unknown]
  - Haemorrhage [Unknown]
